FAERS Safety Report 7973804 (Version 2)
Quarter: 2015Q1

REPORT INFORMATION
  Report Type: Spontaneous
  Country: IT (occurrence: IT)
  Receive Date: 20110603
  Receipt Date: 20150105
  Transmission Date: 20150721
  Serious: Yes (Hospitalization)
  Sender: FDA-Public Use
  Company Number: PHHY2011IT46184

PATIENT
  Age: 33 Day
  Sex: Female
  Weight: 5.6 kg

DRUGS (2)
  1. PROPRANOLOL [Suspect]
     Active Substance: PROPRANOLOL\PROPRANOLOL HYDROCHLORIDE
     Indication: ARRHYTHMIA
     Dosage: 2.5 MG, (0.5 MG/KG)
     Route: 065
  2. VERAPAMIL [Suspect]
     Active Substance: VERAPAMIL HYDROCHLORIDE
     Indication: ARRHYTHMIA
     Dosage: 0.1 MG/KG, UNK
     Route: 042

REACTIONS (16)
  - Anuria [Recovered/Resolved]
  - Hyperkalaemia [Recovered/Resolved]
  - Arrhythmia [Recovered/Resolved]
  - Bradycardia [Recovered/Resolved]
  - Low cardiac output syndrome [Recovered/Resolved]
  - Tachypnoea [Recovered/Resolved]
  - Hypoxia [Recovered/Resolved]
  - Toxicity to various agents [Unknown]
  - Ventricular dysfunction [Recovered/Resolved]
  - Pneumonia [Recovered/Resolved]
  - Metabolic acidosis [Recovered/Resolved]
  - Haemodynamic instability [Recovered/Resolved]
  - Supraventricular tachycardia [Recovered/Resolved]
  - Hypokinesia [Recovered/Resolved]
  - Circulatory collapse [Recovered/Resolved]
  - Blood creatinine increased [Recovered/Resolved]
